FAERS Safety Report 6724176-6 (Version None)
Quarter: 2010Q2

REPORT INFORMATION
  Report Type: 
  Country: None (occurrence: None)
  Receive Date: 20100513
  Receipt Date: 20100502
  Transmission Date: 20101027
  Serious: Yes (Other)
  Sender: FDA-Public Use
  Company Number: US-JNJFOC-20100502259

PATIENT
  Age: 16 Month
  Sex: Male
  Weight: 9.98 kg

DRUGS (5)
  1. CONCENTRATED TYLENOL INFANT DROPS [Suspect]
     Indication: EAR INFECTION
     Route: 048
  2. CONCENTRATED TYLENOL INFANT DROPS [Suspect]
     Indication: PYREXIA
     Route: 048
  3. CHILDREN'S MOTRIN [Suspect]
     Route: 048
  4. CHILDREN'S MOTRIN [Suspect]
     Indication: TEETHING
     Route: 048
  5. CLARITHROMYCIN [Suspect]
     Indication: EAR INFECTION

REACTIONS (2)
  - FEBRILE CONVULSION [None]
  - PRODUCT QUALITY ISSUE [None]
